FAERS Safety Report 20394766 (Version 1)
Quarter: 2022Q1

REPORT INFORMATION
  Report Type: Other
  Country: BR (occurrence: None)
  Receive Date: 20220130
  Receipt Date: 20220130
  Transmission Date: 20220423
  Serious: Yes (Death)
  Sender: FDA-Public Use
  Company Number: BR-Square-000043

PATIENT
  Age: 38 Year
  Sex: Female

DRUGS (3)
  1. ACYCLOVIR [Suspect]
     Active Substance: ACYCLOVIR
     Indication: Genital herpes simplex
     Dosage: 10 MG/KG/DOSE 3 TIMES A DAY
     Route: 042
  2. IMIQUIMOD [Concomitant]
     Active Substance: IMIQUIMOD
     Indication: Genital herpes simplex
     Dosage: 5% CREAM (3 TIMES/WEEK),
  3. ACYCLOVIR [Suspect]
     Active Substance: ACYCLOVIR
     Indication: Genital herpes simplex
     Route: 048

REACTIONS (2)
  - Drug resistance [Fatal]
  - Herpes simplex [Fatal]
